FAERS Safety Report 5530583-X (Version None)
Quarter: 2007Q4

REPORT INFORMATION
  Report Type: 
  Country: None (occurrence: None)
  Receive Date: 20071119
  Receipt Date: 20070821
  Transmission Date: 20080405
  Serious: No
  Sender: FDA-Public Use
  Company Number: TPA2007A01721

PATIENT
  Age: 53 Year
  Sex: Female

DRUGS (4)
  1. ROZEREM [Suspect]
     Dosage: PER ORAL
     Route: 048
     Dates: start: 20070519
  2. CELLCEPT [Concomitant]
  3. PLAQUENIL [Concomitant]
  4. ACTONEL [Concomitant]

REACTIONS (1)
  - ORAL DISORDER [None]
